FAERS Safety Report 7685728-2 (Version None)
Quarter: 2011Q3

REPORT INFORMATION
  Report Type: 
  Country: None (occurrence: None)
  Receive Date: 20110816
  Receipt Date: 20110808
  Transmission Date: 20111222
  Serious: Yes (Life-Threatening)
  Sender: FDA-Public Use
  Company Number: GB-ROCHE-790742

PATIENT
  Age: 65 Year
  Sex: Male
  Weight: 96 kg

DRUGS (17)
  1. TRAMADOL HCL [Concomitant]
  2. AZULFIDINE [Concomitant]
  3. AZATHIOPRINE [Concomitant]
  4. BUMETANIDE [Concomitant]
     Route: 048
  5. SPIRONOLACTONE [Concomitant]
     Route: 048
  6. LANSOPRAZOLE [Concomitant]
  7. ALBUTEROL [Concomitant]
     Route: 055
  8. WARFARIN SODIUM [Concomitant]
     Indication: ATRIAL FIBRILLATION
     Route: 048
  9. PRAVASTATIN [Concomitant]
     Route: 048
  10. DICLOFENAC SODIUM [Concomitant]
  11. ACETAMINOPHEN [Concomitant]
  12. BUDESONIDE [Concomitant]
  13. ACTEMRA [Suspect]
     Route: 042
     Dates: start: 20110319
  14. BISOPROLOL FUMARATE [Concomitant]
     Route: 048
  15. HYDROXYCHLOROQUINE [Concomitant]
  16. MONOMAX [Concomitant]
  17. RAMIPRIL [Concomitant]

REACTIONS (1)
  - BRADYCARDIA [None]
